FAERS Safety Report 12824236 (Version 1)
Quarter: 2016Q4

REPORT INFORMATION
  Report Type: Report from Study
  Country: JP (occurrence: JP)
  Receive Date: 20161006
  Receipt Date: 20161006
  Transmission Date: 20170207
  Serious: Yes (Other)
  Sender: FDA-Public Use
  Company Number: JP-MYLANLABS-2016M1042139

PATIENT

DRUGS (2)
  1. TRANEXAMIC ACID. [Suspect]
     Active Substance: TRANEXAMIC ACID
     Indication: POSTPARTUM HAEMORRHAGE
     Route: 065
  2. FACTOR VIIA, RECOMBINANT [Suspect]
     Active Substance: COAGULATION FACTOR VIIA RECOMBINANT HUMAN
     Indication: POSTPARTUM HAEMORRHAGE
     Dosage: TOTAL DOSE OF 9.6MG, DIVIDED IN 2 DOSES
     Route: 065

REACTIONS (2)
  - Product use issue [Recovered/Resolved]
  - Deep vein thrombosis [Recovered/Resolved]
